FAERS Safety Report 18303665 (Version 1)
Quarter: 2020Q3

REPORT INFORMATION
  Report Type: Spontaneous
  Country: US (occurrence: US)
  Receive Date: 20200924
  Receipt Date: 20200924
  Transmission Date: 20201103
  Serious: No
  Sender: FDA-Public Use
  Company Number: US-ALVOGEN-2020-ALVOGEN-113569

PATIENT
  Age: 72 Year
  Sex: Female
  Weight: 58.5 kg

DRUGS (3)
  1. GRALISE [Suspect]
     Active Substance: GABAPENTIN
     Indication: MUSCULOSKELETAL PAIN
  2. GRALISE [Suspect]
     Active Substance: GABAPENTIN
     Indication: NECK PAIN
  3. GRALISE [Suspect]
     Active Substance: GABAPENTIN
     Indication: PAIN IN EXTREMITY
     Dosage: 300 MG, SINGLE
     Route: 048
     Dates: start: 20200102

REACTIONS (3)
  - Drug titration error [Unknown]
  - Ill-defined disorder [Unknown]
  - Product use in unapproved indication [Unknown]

NARRATIVE: CASE EVENT DATE: 20200102
